FAERS Safety Report 22192353 (Version 1)
Quarter: 2023Q2

REPORT INFORMATION
  Report Type: Spontaneous
  Country: US (occurrence: None)
  Receive Date: 20230409
  Receipt Date: 20230409
  Transmission Date: 20230722
  Serious: Yes (Other)
  Sender: FDA-Public Use
  Company Number: None

PATIENT
  Sex: Male

DRUGS (1)
  1. PANTOPRAZOLE [Suspect]
     Active Substance: PANTOPRAZOLE
     Indication: Gastrooesophageal reflux disease
     Dosage: DAILY ORAL
     Route: 048

REACTIONS (3)
  - Dry mouth [None]
  - Insomnia [None]
  - Mental disorder [None]

NARRATIVE: CASE EVENT DATE: 20230406
